FAERS Safety Report 10549708 (Version 1)
Quarter: 2014Q4

REPORT INFORMATION
  Report Type: Spontaneous
  Country: DE (occurrence: DE)
  Receive Date: 20141028
  Receipt Date: 20141028
  Transmission Date: 20150529
  Serious: Yes (Life-Threatening, Hospitalization)
  Sender: FDA-Public Use
  Company Number: DE-ELI_LILLY_AND_COMPANY-DE201410009490

PATIENT
  Sex: Male
  Weight: 70 kg

DRUGS (2)
  1. EFIENT [Suspect]
     Active Substance: PRASUGREL HYDROCHLORIDE
     Indication: STENT PLACEMENT
     Dosage: 10 MG, UNKNOWN
     Route: 048
     Dates: start: 201312
  2. ASPIRIN. [Concomitant]
     Active Substance: ASPIRIN
     Indication: STENT PLACEMENT
     Dosage: 100 MG, UNKNOWN
     Route: 048
     Dates: start: 201312

REACTIONS (3)
  - Haemorrhage [Recovered/Resolved]
  - Malaise [Recovered/Resolved]
  - Oesophageal injury [Recovered/Resolved]
